FAERS Safety Report 10489427 (Version 1)
Quarter: 2014Q3

REPORT INFORMATION
  Report Type: Spontaneous
  Country: US (occurrence: None)
  Receive Date: 20140815
  Receipt Date: 20140815
  Transmission Date: 20150326
  Serious: Yes (Life-Threatening, Hospitalization, Other)
  Sender: FDA-Public Use
  Company Number: ADR-2014-01035

PATIENT
  Age: 54 Year
  Sex: Female

DRUGS (2)
  1. MORPHINE INTRATHECAL [Suspect]
     Active Substance: MORPHINE
     Indication: LUMBAR RADICULOPATHY
  2. BACLOFEN INTRATHECAL 100 MCG/ML [Suspect]
     Active Substance: BACLOFEN
     Indication: LUMBAR RADICULOPATHY

REACTIONS (2)
  - Overdose [None]
  - Unresponsive to stimuli [None]

NARRATIVE: CASE EVENT DATE: 20140607
